FAERS Safety Report 7209803-1 (Version None)
Quarter: 2011Q1

REPORT INFORMATION
  Report Type: 
  Country: None (occurrence: None)
  Receive Date: 20110104
  Receipt Date: 20101229
  Transmission Date: 20110831
  Serious: Yes (Hospitalization, Disabling)
  Sender: FDA-Public Use
  Company Number: FR-MERCK-1012FRA00163

PATIENT
  Age: 60 Year
  Sex: Male
  Weight: 90 kg

DRUGS (14)
  1. VALPROATE SODIUM AND VALPROIC ACID [Suspect]
     Route: 048
     Dates: start: 20101030, end: 20101030
  2. JANUVIA [Suspect]
     Indication: TYPE 2 DIABETES MELLITUS
     Route: 048
     Dates: start: 20101030, end: 20101030
  3. JANUVIA [Suspect]
     Route: 048
     Dates: end: 20101029
  4. HYDROCHLOROTHIAZIDE AND VALSARTAN [Suspect]
     Route: 048
     Dates: start: 20101030, end: 20101030
  5. GLIMEPIRIDE [Suspect]
     Route: 048
     Dates: start: 20101030, end: 20101030
  6. VALPROATE SODIUM AND VALPROIC ACID [Suspect]
     Route: 048
     Dates: end: 20101029
  7. METFORMIN HYDROCHLORIDE [Suspect]
     Route: 048
     Dates: start: 20101030, end: 20101030
  8. HYDROCHLOROTHIAZIDE AND VALSARTAN [Suspect]
     Route: 048
     Dates: end: 20101029
  9. METFORMIN HYDROCHLORIDE [Suspect]
     Indication: TYPE 2 DIABETES MELLITUS
     Route: 048
     Dates: end: 20101029
  10. ZOLPIDEM TARTRATE [Concomitant]
     Route: 065
  11. CLONAZEPAM [Suspect]
     Route: 048
     Dates: start: 20101030, end: 20101030
  12. CLONAZEPAM [Suspect]
     Route: 048
     Dates: end: 20101029
  13. DICLOFENAC SODIUM [Concomitant]
     Route: 065
  14. GLIMEPIRIDE [Suspect]
     Indication: TYPE 2 DIABETES MELLITUS
     Route: 048
     Dates: end: 20101029

REACTIONS (5)
  - INTENTIONAL OVERDOSE [None]
  - RENAL FAILURE ACUTE [None]
  - HYPOGLYCAEMIA [None]
  - GENERALISED OEDEMA [None]
  - ALTERED STATE OF CONSCIOUSNESS [None]
